FAERS Safety Report 5671330-0 (Version None)
Quarter: 2008Q1

REPORT INFORMATION
  Report Type: 
  Country: None (occurrence: None)
  Receive Date: 20080318
  Receipt Date: 20080310
  Transmission Date: 20080703
  Serious: Yes (Life-Threatening, Hospitalization)
  Sender: FDA-Public Use
  Company Number: DE-PFIZER INC-2007077985

PATIENT
  Sex: Female
  Weight: 95 kg

DRUGS (15)
  1. SU-011,248 [Suspect]
     Indication: BREAST CANCER METASTATIC
     Route: 048
  2. CAPECITABINE [Suspect]
     Indication: BREAST CANCER METASTATIC
     Route: 048
     Dates: start: 20070727, end: 20070809
  3. CAPECITABINE [Suspect]
     Route: 048
     Dates: start: 20070817, end: 20070828
  4. VITAMIN B6 [Concomitant]
     Route: 048
  5. LOPERAMIDE HYDROCHLORIDE [Concomitant]
     Dosage: TEXT:MAX 12MG DAILY
     Route: 048
  6. PASPERTIN [Concomitant]
     Dosage: TEXT:MAX 3 X 30 DROPS-FREQ:AS NECESSARY
     Route: 048
  7. TEGRETOL [Concomitant]
     Route: 048
  8. LYRICA [Concomitant]
     Route: 048
  9. ARCOXIA [Concomitant]
     Route: 048
  10. PANTOZOL [Concomitant]
     Route: 048
  11. L-THYROXIN [Concomitant]
     Route: 048
  12. DEXAMETHASONE TAB [Concomitant]
     Route: 048
  13. LAMOTRIGINE [Concomitant]
     Route: 048
  14. KEPPRA [Concomitant]
     Route: 048
  15. CLEXANE [Concomitant]
     Route: 030
     Dates: start: 20070401, end: 20070911

REACTIONS (2)
  - ERYSIPELAS [None]
  - PELVIC VENOUS THROMBOSIS [None]
